FAERS Safety Report 8896391 (Version 1)
Quarter: 2012Q4

REPORT INFORMATION
  Report Type: Spontaneous
  Country: US (occurrence: None)
  Receive Date: 20121101
  Receipt Date: 20121101
  Transmission Date: 20130627
  Serious: Yes (Other)
  Sender: FDA-Public Use
  Company Number: 2012SA075865

PATIENT
  Sex: Male

DRUGS (1)
  1. ICY HOT [Suspect]
     Dates: start: 201106

REACTIONS (1)
  - Thermal burn [None]
